FAERS Safety Report 8846054 (Version 2)
Quarter: 2013Q1

REPORT INFORMATION
  Report Type: Report from Study
  Country: JP (occurrence: JP)
  Receive Date: 20121017
  Receipt Date: 20130315
  Transmission Date: 20140127
  Serious: Yes (Hospitalization, Other)
  Sender: FDA-Public Use
  Company Number: PHHY2012JP060123

PATIENT
  Age: 28 Year
  Sex: Female

DRUGS (5)
  1. FTY 720 [Suspect]
     Indication: MULTIPLE SCLEROSIS
     Dosage: 0.5 MG, QD
     Route: 048
     Dates: start: 20120628, end: 20120724
  2. FTY 720 [Suspect]
     Dosage: 0.5 MG, QD
     Route: 048
  3. DEPAS [Concomitant]
     Dosage: 1.5 MG, QD
     Route: 048
  4. DEPAKENE [Concomitant]
     Dosage: 1000 MG, QD
     Route: 048
  5. ZOPICLONE [Concomitant]
     Dosage: 7.5 MG, QD
     Route: 048

REACTIONS (3)
  - Heart rate decreased [Recovered/Resolved]
  - Leukopenia [Not Recovered/Not Resolved]
  - Lymphopenia [Not Recovered/Not Resolved]
